FAERS Safety Report 5707999-1 (Version None)
Quarter: 2008Q2

REPORT INFORMATION
  Report Type: 
  Country: None (occurrence: None)
  Receive Date: 20080417
  Receipt Date: 20080409
  Transmission Date: 20081010
  Serious: Yes (Other)
  Sender: FDA-Public Use
  Company Number: US-ROCHE-557601

PATIENT
  Age: 66 Year
  Sex: Female

DRUGS (7)
  1. BONIVA [Suspect]
     Indication: OSTEOPOROSIS
     Dosage: DOSE: 3MG IN 3 ML
     Route: 042
  2. ALTACE [Concomitant]
  3. MULTI-VITAMIN [Concomitant]
  4. CALCIUM [Concomitant]
  5. 1 CONCOMITANT DRUG [Concomitant]
     Dosage: DRUG: OCCUVITE
  6. GLUCOSAMINE [Concomitant]
  7. CHONDROITIN [Concomitant]

REACTIONS (1)
  - THROMBOSIS [None]
